FAERS Safety Report 5913265-1 (Version None)
Quarter: 2008Q4

REPORT INFORMATION
  Report Type: 
  Country: None (occurrence: None)
  Receive Date: 20081008
  Receipt Date: 20081008
  Transmission Date: 20090506
  Serious: Yes (Hospitalization, Other)
  Sender: FDA-Public Use
  Company Number: None

PATIENT
  Age: 66 Year
  Sex: Female
  Weight: 60.782 kg

DRUGS (1)
  1. CEFDINIR [Suspect]
     Indication: SINUSITIS
     Dosage: 1 CAPSULE TWICE DAILY PO
     Route: 048
     Dates: start: 20080829, end: 20080903

REACTIONS (14)
  - ABDOMINAL PAIN UPPER [None]
  - ARTHRALGIA [None]
  - DIARRHOEA [None]
  - FLATULENCE [None]
  - HEADACHE [None]
  - HYPOAESTHESIA [None]
  - JOINT WARMTH [None]
  - MALAISE [None]
  - MYALGIA [None]
  - OEDEMA PERIPHERAL [None]
  - PAIN IN EXTREMITY [None]
  - PARAESTHESIA [None]
  - PRODUCT QUALITY ISSUE [None]
  - TENDERNESS [None]
